FAERS Safety Report 24148164 (Version 1)
Quarter: 2024Q3

REPORT INFORMATION
  Report Type: Spontaneous
  Country: US (occurrence: None)
  Receive Date: 20240728
  Receipt Date: 20240728
  Transmission Date: 20241017
  Serious: Yes (Hospitalization)
  Sender: Public
  Company Number: None

PATIENT
  Age: 64 Year
  Sex: Female

DRUGS (1)
  1. CARVYKTI [Suspect]
     Active Substance: CILTACABTAGENE AUTOLEUCEL

REACTIONS (5)
  - Cytokine release syndrome [None]
  - Pyrexia [None]
  - Influenza [None]
  - Hypotension [None]
  - Rash [None]

NARRATIVE: CASE EVENT DATE: 20240331
